FAERS Safety Report 4670399-X (Version None)
Quarter: 2005Q2

REPORT INFORMATION
  Report Type: 
  Country: None (occurrence: None)
  Receive Date: 20050523
  Receipt Date: 20050503
  Transmission Date: 20051028
  Serious: Yes (Death)
  Sender: FDA-Public Use
  Company Number: GBWYE313805JAN05

PATIENT
  Age: 82 Year
  Sex: Male

DRUGS (5)
  1. DIAMOX [Suspect]
     Indication: PROPHYLAXIS
     Dosage: 250 MG 1 X PER 1 TOT
     Route: 048
     Dates: start: 20041116, end: 20041116
  2. COMBIVENT [Concomitant]
  3. ENALAPRIL MALEATE [Concomitant]
  4. FUROSEMIDE [Concomitant]
  5. SERETIDE (SALMETEROL/FLUTICASONE) [Concomitant]

REACTIONS (4)
  - CARDIAC ARREST [None]
  - EMPHYSEMA [None]
  - MYOCARDIAL INFARCTION [None]
  - PROCEDURAL COMPLICATION [None]
